FAERS Safety Report 8178238-X (Version None)
Quarter: 2012Q1

REPORT INFORMATION
  Report Type: 
  Country: None (occurrence: None)
  Receive Date: 20120301
  Receipt Date: 20120221
  Transmission Date: 20120608
  Serious: Yes (Other)
  Sender: FDA-Public Use
  Company Number: PHHY2011JP69511

PATIENT
  Sex: Female

DRUGS (34)
  1. CLOZARIL [Suspect]
     Dosage: 25 MG
     Route: 048
     Dates: start: 20101117, end: 20101117
  2. CLOZARIL [Suspect]
     Dosage: 150 MG
     Route: 048
     Dates: start: 20101130, end: 20101202
  3. CLOZARIL [Suspect]
     Dosage: 350 MG
     Route: 048
     Dates: start: 20101221, end: 20110103
  4. CLOZARIL [Suspect]
     Dosage: 500 MG
     Route: 048
     Dates: start: 20110210
  5. ZYPREXA [Concomitant]
     Dosage: 10 MG
     Route: 048
     Dates: start: 20101116, end: 20101213
  6. ABILIFY [Concomitant]
     Route: 048
  7. AKINETON [Concomitant]
     Dosage: 1 MG
     Dates: end: 20101231
  8. CLOZARIL [Suspect]
     Dosage: 75 MG
     Route: 048
     Dates: start: 20101123, end: 20101123
  9. CLOZARIL [Suspect]
     Dosage: 125 MG
     Route: 048
     Dates: start: 20101125, end: 20101129
  10. CLOZARIL [Suspect]
     Dosage: 200 MG
     Route: 048
     Dates: start: 20101206, end: 20101209
  11. CLOZARIL [Suspect]
     Dosage: 300 MG
     Route: 048
     Dates: start: 20101210, end: 20101213
  12. CLOZARIL [Suspect]
     Dosage: 400 MG
     Route: 048
     Dates: start: 20101214, end: 20101220
  13. CLOZARIL [Suspect]
     Dosage: 600 MG
     Route: 048
     Dates: start: 20110118, end: 20110209
  14. LONASEN [Concomitant]
     Dosage: 24 MG
     Route: 048
     Dates: start: 20101116
  15. LONASEN [Concomitant]
     Dosage: 12 MG, UNK
     Route: 048
     Dates: end: 20101209
  16. AKINETON [Concomitant]
     Dosage: 4 MG
     Route: 048
  17. AKINETON [Concomitant]
     Dosage: 3 MG
     Route: 048
  18. ALLEGRA [Concomitant]
     Indication: DERMATITIS
     Dosage: 120 MG, UNK
     Route: 048
     Dates: start: 20101214, end: 20101227
  19. CLOZARIL [Suspect]
     Indication: SCHIZOPHRENIA, DISORGANISED TYPE
     Dosage: 12.5 MG
     Route: 048
     Dates: start: 20101116, end: 20101116
  20. THIORIDAZINE HYDROCHLORIDE [Concomitant]
     Route: 048
  21. LULLAN [Concomitant]
     Dosage: 24 MG
     Route: 048
  22. AKINETON [Concomitant]
     Dosage: 6 MG
     Route: 048
     Dates: start: 20101116
  23. FERROUS CITRATE [Concomitant]
     Indication: IRON DEFICIENCY ANAEMIA
     Dosage: 100 MG, UNK
     Route: 048
     Dates: start: 20010222, end: 20110524
  24. CLOZARIL [Suspect]
     Dosage: 175 MG
     Route: 048
     Dates: start: 20101203, end: 20101205
  25. RISPERDAL [Concomitant]
     Route: 048
  26. AKINETON [Concomitant]
     Dosage: 2 MG
     Route: 048
  27. CLOZARIL [Suspect]
     Dosage: 500 MG
     Route: 048
     Dates: start: 20110111, end: 20110117
  28. HIRNAMIN [Concomitant]
  29. CLOZARIL [Suspect]
     Dosage: 50 MG
     Route: 048
     Dates: start: 20101118, end: 20101122
  30. CLOZARIL [Suspect]
     Dosage: 450 MG
     Route: 048
     Dates: start: 20110104, end: 20110110
  31. LULLAN [Concomitant]
     Dosage: 48 MG
     Route: 048
     Dates: start: 20101116
  32. CLOZARIL [Suspect]
     Dosage: 100 MG
     Route: 048
     Dates: start: 20101124, end: 20101124
  33. LULLAN [Concomitant]
     Dosage: 16 MG
     Route: 048
     Dates: end: 20101202
  34. CORTRIL [Concomitant]
     Indication: DERMATITIS
     Dates: start: 20110321, end: 20110322

REACTIONS (9)
  - VOMITING [None]
  - DERMATITIS [None]
  - CONSTIPATION [None]
  - DIARRHOEA [None]
  - LOSS OF CONSCIOUSNESS [None]
  - UPPER RESPIRATORY TRACT INFLAMMATION [None]
  - CONVULSION [None]
  - CLONIC CONVULSION [None]
  - SALIVARY HYPERSECRETION [None]
